FAERS Safety Report 23641515 (Version 2)
Quarter: 2024Q2

REPORT INFORMATION
  Report Type: Other
  Country: JP (occurrence: JP)
  Receive Date: 20240318
  Receipt Date: 20240408
  Transmission Date: 20240716
  Serious: Yes (Hospitalization)
  Sender: FDA-Public Use
  Company Number: JP-CHUGAI-2024007892

PATIENT
  Age: 72 Year
  Sex: Female
  Weight: 38.1 kg

DRUGS (7)
  1. PERJETA [Suspect]
     Active Substance: PERTUZUMAB
     Indication: HER2 positive breast cancer
     Dosage: 420MG/14ML
     Route: 065
     Dates: start: 20211126
  2. PERJETA [Suspect]
     Active Substance: PERTUZUMAB
     Dosage: 420MG/14ML
     Route: 065
     Dates: end: 20220217
  3. HERCEPTIN [Suspect]
     Active Substance: TRASTUZUMAB
     Indication: HER2 positive breast cancer
     Route: 065
     Dates: start: 20211126
  4. HERCEPTIN [Suspect]
     Active Substance: TRASTUZUMAB
     Route: 065
     Dates: end: 20220217
  5. EPIRUBICIN HYDROCHLORIDE [Suspect]
     Active Substance: EPIRUBICIN HYDROCHLORIDE
     Indication: HER2 positive breast cancer
     Route: 065
     Dates: start: 20210903, end: 20211125
  6. DOCETAXEL [Concomitant]
     Active Substance: DOCETAXEL\DOCETAXEL ANHYDROUS
     Indication: HER2 positive breast cancer
     Dates: start: 20211126, end: 20230217
  7. DECADRON [Concomitant]
     Active Substance: DEXAMETHASONE
     Dates: start: 20211126, end: 20220129

REACTIONS (1)
  - Cardiac dysfunction [Recovering/Resolving]

NARRATIVE: CASE EVENT DATE: 20220211
